FAERS Safety Report 9860075 (Version 1)
Quarter: 2014Q1

REPORT INFORMATION
  Report Type: Spontaneous
  Country: US (occurrence: US)
  Receive Date: 20140131
  Receipt Date: 20140131
  Transmission Date: 20141002
  Serious: Yes (Death)
  Sender: FDA-Public Use
  Company Number: US-ROCHE-1342947

PATIENT
  Sex: Male
  Weight: 72.19 kg

DRUGS (8)
  1. XELODA [Suspect]
     Indication: GASTROINTESTINAL CARCINOMA
     Dosage: 3 BID
     Route: 048
     Dates: start: 20130912, end: 20131210
  2. TRAMADOL [Concomitant]
  3. XGEVA [Concomitant]
  4. AMLODIPINE [Concomitant]
  5. SANDOSTATIN [Concomitant]
  6. CLOPIDOGREL [Concomitant]
  7. ASPIRIN [Concomitant]
  8. SIMVASTATIN [Concomitant]

REACTIONS (1)
  - Death [Fatal]
